FAERS Safety Report 8601383-9 (Version None)
Quarter: 2012Q3

REPORT INFORMATION
  Report Type: 
  Country: None (occurrence: None)
  Receive Date: 20120817
  Receipt Date: 20120813
  Transmission Date: 20120928
  Serious: Yes (Other)
  Sender: FDA-Public Use
  Company Number: US-PFIZER INC-2012197524

PATIENT
  Age: 49 Year
  Sex: Female

DRUGS (2)
  1. COPAXONE [Suspect]
     Indication: MULTIPLE SCLEROSIS
     Dosage: 20 MG, UNK
     Route: 058
     Dates: start: 20120707
  2. ZITHROMAX [Suspect]
     Indication: BRONCHITIS
     Dosage: UNK
     Dates: start: 20120701, end: 20120701

REACTIONS (3)
  - DYSPNOEA [None]
  - FLUSHING [None]
  - IMMEDIATE POST-INJECTION REACTION [None]
